FAERS Safety Report 13237711 (Version 1)
Quarter: 2017Q1

REPORT INFORMATION
  Report Type: Spontaneous
  Country: US (occurrence: US)
  Receive Date: 20170215
  Receipt Date: 20170215
  Transmission Date: 20170428
  Serious: Yes (Hospitalization)
  Sender: FDA-Public Use
  Company Number: None

PATIENT
  Age: 78 Year
  Sex: Male
  Weight: 96.9 kg

DRUGS (2)
  1. ACYCLOVIR. [Suspect]
     Active Substance: ACYCLOVIR
     Indication: MENINGOENCEPHALITIS HERPETIC
     Route: 042
     Dates: start: 20170107, end: 20170109
  2. ACYCLOVIR. [Suspect]
     Active Substance: ACYCLOVIR
     Indication: OPHTHALMIC HERPES SIMPLEX
     Route: 048
     Dates: start: 20170113, end: 20170114

REACTIONS (12)
  - Delirium [None]
  - Anti-thyroid antibody positive [None]
  - Acute kidney injury [None]
  - Encephalitis autoimmune [None]
  - Mood altered [None]
  - Hallucination, visual [None]
  - Azotaemia [None]
  - Myoclonus [None]
  - Agitation [None]
  - Disorientation [None]
  - Blood creatinine increased [None]
  - Confusional state [None]

NARRATIVE: CASE EVENT DATE: 20170108
